FAERS Safety Report 17193317 (Version 1)
Quarter: 2019Q4

REPORT INFORMATION
  Report Type: Spontaneous
  Country: CA (occurrence: CA)
  Receive Date: 20191223
  Receipt Date: 20191223
  Transmission Date: 20200122
  Serious: Yes (Hospitalization, Other)
  Sender: FDA-Public Use
  Company Number: CA-TEVA-2019-CA-1154952

PATIENT
  Age: 90 Year
  Sex: Female
  Weight: 59 kg

DRUGS (10)
  1. NITROFURANTOIN. [Concomitant]
     Active Substance: NITROFURANTOIN
  2. IRBESARTAN. [Concomitant]
     Active Substance: IRBESARTAN
  3. LATANOPROST. [Concomitant]
     Active Substance: LATANOPROST
  4. AMOXI-CLAV [Concomitant]
     Active Substance: AMOXICILLIN\CLAVULANATE POTASSIUM
  5. DILTIAZEM. [Suspect]
     Active Substance: DILTIAZEM
     Route: 048
  6. RANITIDINE. [Concomitant]
     Active Substance: RANITIDINE
  7. SALBUTAMOL [Concomitant]
     Active Substance: ALBUTEROL
  8. TIMOLOL. [Concomitant]
     Active Substance: TIMOLOL
  9. ACETAMINOPHEN. [Concomitant]
     Active Substance: ACETAMINOPHEN
  10. WARFARIN [Concomitant]
     Active Substance: WARFARIN

REACTIONS (7)
  - Acute kidney injury [Recovering/Resolving]
  - Dermatitis exfoliative generalised [Recovering/Resolving]
  - International normalised ratio abnormal [Recovering/Resolving]
  - Rash [Recovering/Resolving]
  - Pollakiuria [Recovering/Resolving]
  - Diarrhoea [Recovering/Resolving]
  - Erythema [Recovering/Resolving]
